FAERS Safety Report 6704256-1 (Version None)
Quarter: 2010Q2

REPORT INFORMATION
  Report Type: 
  Country: None (occurrence: None)
  Receive Date: 20100430
  Receipt Date: 20100101
  Transmission Date: 20101027
  Serious: No
  Sender: FDA-Public Use
  Company Number: US-TYCO HEALTHCARE/MALLINCKRODT-T201000088

PATIENT
  Sex: Female
  Weight: 56.689 kg

DRUGS (3)
  1. ACETAMINOPHEN AND HYDROCODONE BITARTRATE [Suspect]
     Indication: MUSCULOSKELETAL DISCOMFORT
     Dosage: UNK, PRN
     Dates: start: 20090101, end: 20091218
  2. ZOCOR [Concomitant]
     Indication: BLOOD CHOLESTEROL INCREASED
     Dosage: UNK
     Route: 048
     Dates: start: 20091001
  3. ZOCOR [Concomitant]
     Dosage: UNK
     Dates: start: 20091201

REACTIONS (4)
  - BURNING SENSATION [None]
  - CHEILITIS [None]
  - HYPERSENSITIVITY [None]
  - LIP SWELLING [None]
